FAERS Safety Report 5230039-8 (Version None)
Quarter: 2007Q1

REPORT INFORMATION
  Report Type: 
  Country: None (occurrence: None)
  Receive Date: 20070206
  Receipt Date: 20060926
  Transmission Date: 20070707
  Serious: No
  Sender: FDA-Public Use
  Company Number: US-GLAXOSMITHKLINE-A0621493A

PATIENT
  Age: 32 Year
  Sex: Female

DRUGS (1)
  1. PAXIL [Suspect]
     Dosage: 20MG VARIABLE DOSE
     Route: 048
     Dates: start: 19990101

REACTIONS (2)
  - HYPOAESTHESIA [None]
  - MUSCLE TIGHTNESS [None]
